FAERS Safety Report 6838100-9 (Version None)
Quarter: 2010Q3

REPORT INFORMATION
  Report Type: 
  Country: None (occurrence: None)
  Receive Date: 20100713
  Receipt Date: 20070601
  Transmission Date: 20110219
  Serious: No
  Sender: FDA-Public Use
  Company Number: US-PFIZER INC-2007046942

PATIENT
  Sex: Female
  Weight: 62.2 kg

DRUGS (5)
  1. CHANTIX [Suspect]
     Indication: SMOKING CESSATION THERAPY
     Route: 048
     Dates: start: 20070523
  2. CELEXA [Concomitant]
  3. PENICILLIN NOS [Concomitant]
  4. VITAMINS [Concomitant]
  5. ZYRTEC [Concomitant]

REACTIONS (1)
  - CHEST DISCOMFORT [None]
